FAERS Safety Report 25768446 (Version 2)
Quarter: 2025Q3

REPORT INFORMATION
  Report Type: Report from Study
  Country: CR (occurrence: CR)
  Receive Date: 20250905
  Receipt Date: 20250909
  Transmission Date: 20251020
  Serious: Yes (Death, Hospitalization, Other)
  Sender: DAIICHI
  Company Number: CR-AstraZeneca-CH-00940424A

PATIENT
  Sex: Female

DRUGS (1)
  1. ENHERTU [Suspect]
     Active Substance: FAM-TRASTUZUMAB DERUXTECAN-NXKI
     Indication: Breast cancer
     Dosage: 5.4 MG/KG, ONCE EVERY 3 WK
     Route: 042
     Dates: start: 20250516

REACTIONS (3)
  - Cardiotoxicity [Fatal]
  - Dysphonia [Not Recovered/Not Resolved]
  - Dyspnoea [Not Recovered/Not Resolved]

NARRATIVE: CASE EVENT DATE: 20250801
